FAERS Safety Report 6073520-4 (Version None)
Quarter: 2009Q1

REPORT INFORMATION
  Report Type: 
  Country: None (occurrence: None)
  Receive Date: 20090211
  Receipt Date: 20090204
  Transmission Date: 20090719
  Serious: Yes (Hospitalization, Other)
  Sender: FDA-Public Use
  Company Number: FR-BAYER-200912865GPV

PATIENT
  Age: 70 Year
  Sex: Female
  Weight: 55 kg

DRUGS (6)
  1. MABCAMPATH [Suspect]
     Indication: T-CELL PROLYMPHOCYTIC LEUKAEMIA
     Dosage: TOTAL DAILY DOSE: 3 MG
     Route: 058
     Dates: start: 20090128, end: 20090128
  2. MABCAMPATH [Suspect]
     Dosage: TOTAL DAILY DOSE: 10 MG
     Route: 058
     Dates: start: 20090129, end: 20090129
  3. MABCAMPATH [Suspect]
     Dosage: TOTAL DAILY DOSE: 30 MG
     Route: 058
     Dates: start: 20090130, end: 20090130
  4. FLUDARA [Suspect]
     Indication: T-CELL PROLYMPHOCYTIC LEUKAEMIA
     Route: 042
     Dates: start: 20090201
  5. FASTURTEC [Suspect]
     Indication: PROPHYLAXIS
     Route: 065
     Dates: start: 20090101
  6. ZYLORIC [Suspect]
     Indication: PROPHYLAXIS
     Route: 065
     Dates: start: 20090101

REACTIONS (9)
  - BLOOD BLISTER [None]
  - CAPILLARY LEAK SYNDROME [None]
  - GENERALISED OEDEMA [None]
  - GINGIVAL BLEEDING [None]
  - HAEMATOMA [None]
  - INJECTION SITE HAEMORRHAGE [None]
  - OLIGURIA [None]
  - RENAL FAILURE [None]
  - RESPIRATORY FAILURE [None]
